FAERS Safety Report 12199192 (Version 3)
Quarter: 2016Q2

REPORT INFORMATION
  Report Type: Report from Study
  Country: CA (occurrence: CA)
  Receive Date: 20160322
  Receipt Date: 20160509
  Transmission Date: 20160815
  Serious: Yes (Death, Hospitalization)
  Sender: FDA-Public Use
  Company Number: PHHY2015CA142211

PATIENT
  Age: 71 Year
  Sex: Male

DRUGS (2)
  1. SANDOSTATIN [Suspect]
     Active Substance: OCTREOTIDE ACETATE
     Indication: IRON DEFICIENCY ANAEMIA
     Dosage: 100 UG, BID FOR 5 DAYS
     Route: 058
     Dates: start: 20150901, end: 201509
  2. SANDOSTATIN LAR DEPOT [Suspect]
     Active Substance: OCTREOTIDE ACETATE
     Indication: IRON DEFICIENCY ANAEMIA
     Dosage: 20 MG, QMO (EVERY  4 WEEKS)
     Route: 030
     Dates: start: 20151002

REACTIONS (5)
  - Death [Fatal]
  - Blood pressure diastolic decreased [Unknown]
  - Blood pressure systolic increased [Unknown]
  - Respiratory disorder [Unknown]
  - Product use issue [Unknown]

NARRATIVE: CASE EVENT DATE: 20150901
